FAERS Safety Report 6078113-0 (Version None)
Quarter: 2009Q1

REPORT INFORMATION
  Report Type: 
  Country: None (occurrence: None)
  Receive Date: 20090213
  Receipt Date: 20090211
  Transmission Date: 20090719
  Serious: Yes (Other)
  Sender: FDA-Public Use
  Company Number: US-ASTRAZENECA-2009UW03995

PATIENT
  Age: 77 Year
  Sex: Female
  Weight: 74.8 kg

DRUGS (14)
  1. CRESTOR [Suspect]
     Route: 048
     Dates: end: 20080101
  2. CRESTOR [Suspect]
     Route: 048
     Dates: start: 20080101
  3. PLAVIX [Concomitant]
  4. VITAMIN D [Concomitant]
  5. LASIX [Concomitant]
  6. SYNTHROID [Concomitant]
  7. POTASSIUM CHLORIDE [Concomitant]
  8. CLONIDINE HCL [Concomitant]
  9. LISINOPRIL [Concomitant]
  10. METOPROLOL SUCCINATE [Concomitant]
  11. DIGOXIN [Concomitant]
  12. CLONAZEPAM [Concomitant]
  13. JANUVIA [Concomitant]
  14. TRICOR [Concomitant]

REACTIONS (4)
  - DIABETES MELLITUS [None]
  - DRUG INEFFECTIVE [None]
  - GAIT DISTURBANCE [None]
  - HYPOAESTHESIA [None]
